FAERS Safety Report 24749130 (Version 1)
Quarter: 2024Q4

REPORT INFORMATION
  Report Type: Spontaneous
  Country: SG (occurrence: SG)
  Receive Date: 20241218
  Receipt Date: 20241218
  Transmission Date: 20250115
  Serious: Yes (Life-Threatening, Hospitalization, Other)
  Sender: PURDUE
  Company Number: SG-NAPPMUNDI-GBR-2024-0122108

PATIENT
  Age: 33 Year
  Sex: Female
  Weight: 93 kg

DRUGS (4)
  1. MORPHINE SULFATE [Suspect]
     Active Substance: MORPHINE SULFATE
     Indication: Spinal anaesthesia
     Dosage: 0.1MG OF MORPHINE (IN A TOTAL OF 2.8ML)
     Route: 065
  2. MORPHINE SULFATE [Suspect]
     Active Substance: MORPHINE SULFATE
     Indication: Spinal anaesthesia
     Dosage: 0.1MG OF MORPHINE (IN A TOTAL OF 2.8ML)
     Route: 065
  3. BUPIVACAINE HYDROCHLORIDE [Suspect]
     Active Substance: BUPIVACAINE HYDROCHLORIDE
     Indication: Spinal anaesthesia
     Dosage: 2.4ML OF 0.5% HEAVY BUPIVACAINE
     Route: 065
  4. FENTANYL CITRATE [Suspect]
     Active Substance: FENTANYL CITRATE
     Indication: Spinal anaesthesia
     Dosage: 15 MICROGRAM
     Route: 065

REACTIONS (2)
  - Loss of consciousness [Recovered/Resolved]
  - Oxygen saturation decreased [Unknown]
